FAERS Safety Report 8858798 (Version 4)
Quarter: 2013Q1

REPORT INFORMATION
  Report Type: Spontaneous
  Country: CH (occurrence: CH)
  Receive Date: 20121024
  Receipt Date: 20130103
  Transmission Date: 20140127
  Serious: Yes (Death)
  Sender: FDA-Public Use
  Company Number: CH-JNJFOC-20121012016

PATIENT
  Age: 77 Year
  Sex: Female
  Weight: 53 kg

DRUGS (7)
  1. XARELTO [Suspect]
     Indication: DEEP VEIN THROMBOSIS
     Route: 048
     Dates: start: 20120911, end: 20120917
  2. XARELTO [Suspect]
     Indication: PHLEBITIS
     Route: 048
     Dates: start: 20120911, end: 20120917
  3. SPIRICORT [Suspect]
     Indication: OVERLAP SYNDROME
     Route: 048
     Dates: start: 20120917, end: 20120917
  4. MARCOUMAR [Suspect]
     Indication: DEEP VEIN THROMBOSIS
     Route: 048
     Dates: start: 20120906, end: 20120911
  5. MARCOUMAR [Suspect]
     Indication: PHLEBITIS
     Route: 048
     Dates: start: 20120906, end: 20120911
  6. PANTOZOL [Concomitant]
     Route: 048
  7. XYZAL [Concomitant]
     Route: 048

REACTIONS (3)
  - Subdural haemorrhage [Fatal]
  - International normalised ratio increased [Fatal]
  - Rash [Unknown]
